FAERS Safety Report 10732061 (Version 1)
Quarter: 2015Q1

REPORT INFORMATION
  Report Type: Spontaneous
  Country: US (occurrence: None)
  Receive Date: 20150120
  Receipt Date: 20150120
  Transmission Date: 20150721
  Serious: Yes (Death)
  Sender: FDA-Public Use
  Company Number: 2015010019

PATIENT
  Age: 30 Year
  Sex: Male

DRUGS (3)
  1. DIAZEPAM (DIAZEPAM) [Suspect]
     Active Substance: DIAZEPAM
  2. ALCOHOL (ALCOHOL) [Suspect]
     Active Substance: ALCOHOL
  3. ZOLPIDEM (ZOLPIDEM) [Suspect]
     Active Substance: ZOLPIDEM TARTRATE

REACTIONS (3)
  - Exposure via ingestion [None]
  - Poisoning [None]
  - Aspiration [None]

NARRATIVE: CASE EVENT DATE: 2013
